FAERS Safety Report 8818631 (Version 1)
Quarter: 2012Q4

REPORT INFORMATION
  Report Type: Spontaneous
  Country: US (occurrence: None)
  Receive Date: 20121002
  Receipt Date: 20121002
  Transmission Date: 20130627
  Serious: Yes (Other)
  Sender: FDA-Public Use
  Company Number: TPA2012A07103

PATIENT
  Sex: Female

DRUGS (1)
  1. DEXILANT [Suspect]
     Route: 048

REACTIONS (2)
  - Oedema peripheral [None]
  - Leukocytoclastic vasculitis [None]
